FAERS Safety Report 16041336 (Version 1)
Quarter: 2019Q1

REPORT INFORMATION
  Report Type: Spontaneous
  Country: SE (occurrence: SE)
  Receive Date: 20190306
  Receipt Date: 20190306
  Transmission Date: 20190418
  Serious: Yes (Hospitalization)
  Sender: FDA-Public Use
  Company Number: SE-BIOGEN-2019BI00704002

PATIENT
  Age: 35 Year
  Sex: Female

DRUGS (2)
  1. TYSABRI [Suspect]
     Active Substance: NATALIZUMAB
     Indication: MULTIPLE SCLEROSIS
     Dosage: FOR A FEW YEARS
     Route: 065
  2. TYSABRI [Suspect]
     Active Substance: NATALIZUMAB
     Dosage: RESTART
     Route: 065

REACTIONS (5)
  - Infected skin ulcer [Unknown]
  - Gait disturbance [Unknown]
  - Pancytopenia [Unknown]
  - Malnutrition [Unknown]
  - Dehydration [Unknown]
